FAERS Safety Report 4974576-X (Version None)
Quarter: 2006Q2

REPORT INFORMATION
  Report Type: 
  Country: None (occurrence: None)
  Receive Date: 20060410
  Receipt Date: 20060328
  Transmission Date: 20061013
  Serious: Yes (Death, Hospitalization)
  Sender: FDA-Public Use
  Company Number: 062-20785-06030625

PATIENT
  Age: 75 Year
  Sex: Female

DRUGS (4)
  1. THALIDOMIDE - PHARMION (THALIDOMIDE) (50 MILLIGRAM, CAPSULES) [Suspect]
     Indication: PLASMACYTOMA
     Dosage: 400 MG, QD, ORAL
     Route: 048
     Dates: start: 20060130
  2. OPIOIDS (OPIOIDS) [Concomitant]
  3. BISPHOSPHONATES (BISPHOSPHONATES) [Concomitant]
  4. IMMUNE GLOBULIN INTRAVENOUS (HUMAN) [Concomitant]

REACTIONS (7)
  - BRONCHITIS [None]
  - CARDIAC FAILURE [None]
  - DISEASE PROGRESSION [None]
  - PERFORMANCE STATUS DECREASED [None]
  - PLEURAL EFFUSION [None]
  - SOMNOLENCE [None]
  - SYSTEMIC INFLAMMATORY RESPONSE SYNDROME [None]
